FAERS Safety Report 17932854 (Version 1)
Quarter: 2020Q2

REPORT INFORMATION
  Report Type: Spontaneous
  Country: SE (occurrence: SE)
  Receive Date: 20200623
  Receipt Date: 20200623
  Transmission Date: 20200714
  Serious: Yes (Hospitalization)
  Sender: FDA-Public Use
  Company Number: SE-PFIZER INC-2020242094

PATIENT
  Age: 75 Year
  Sex: Male

DRUGS (3)
  1. GABAPENTIN. [Concomitant]
     Active Substance: GABAPENTIN
     Dosage: UNK
     Route: 065
  2. METHOTREXATE ORION [Suspect]
     Active Substance: METHOTREXATE
     Indication: RHEUMATOID ARTHRITIS
     Dosage: 20 MG
     Route: 065
     Dates: start: 20110105, end: 20190918
  3. SULFASALAZINE. [Concomitant]
     Active Substance: SULFASALAZINE
     Dosage: UNK
     Route: 065

REACTIONS (2)
  - Computerised tomogram thorax abnormal [Recovering/Resolving]
  - Bronchoalveolar lavage abnormal [Recovering/Resolving]

NARRATIVE: CASE EVENT DATE: 20190909
